FAERS Safety Report 22651827 (Version 3)
Quarter: 2023Q4

REPORT INFORMATION
  Report Type: Spontaneous
  Country: US (occurrence: US)
  Receive Date: 20230628
  Receipt Date: 20231114
  Transmission Date: 20240109
  Serious: Yes (Hospitalization, Other)
  Sender: FDA-Public Use
  Company Number: US-BAYER-2023A090057

PATIENT
  Age: 36 Year
  Sex: Male

DRUGS (2)
  1. KOGENATE FS [Suspect]
     Active Substance: ANTIHEMOPHILIC FACTOR, HUMAN RECOMBINANT
     Dosage: 4000 UNITS (+/-10%)
     Route: 042
  2. KOGENATE FS [Suspect]
     Active Substance: ANTIHEMOPHILIC FACTOR, HUMAN RECOMBINANT
     Dosage: EVERY 24-48 HRS, FOR KNEE PROCEDURE

REACTIONS (4)
  - Joint injury [None]
  - Haemorrhage [None]
  - Limb injury [None]
  - Joint swelling [None]

NARRATIVE: CASE EVENT DATE: 20230502
